FAERS Safety Report 4618627-0 (Version None)
Quarter: 2005Q1

REPORT INFORMATION
  Report Type: 
  Country: None (occurrence: None)
  Receive Date: 20050323
  Receipt Date: 20050315
  Transmission Date: 20050727
  Serious: Yes (Other)
  Sender: FDA-Public Use
  Company Number: 200510494BCC

PATIENT
  Age: 57 Year
  Sex: Female
  Weight: 79.3795 kg

DRUGS (13)
  1. E.S. BAYER BACK + BODY PAIN [Suspect]
     Indication: ARTHRITIS
     Dosage: SEE IMAGE
     Route: 048
     Dates: end: 20050202
  2. E.S. BAYER BACK + BODY PAIN [Suspect]
     Indication: ARTHRITIS
     Dosage: SEE IMAGE
     Route: 048
     Dates: start: 20050202
  3. TOPAMAX [Concomitant]
  4. SEROQUEL [Concomitant]
  5. ROBAXIN [Concomitant]
  6. TEMAZEPAM [Concomitant]
  7. PROMETHAZINE [Concomitant]
  8. NORCO [Concomitant]
  9. KEFLEX [Concomitant]
  10. TRAZODONE HCL [Concomitant]
  11. NEURONTIN [Concomitant]
  12. THORAZINE [Concomitant]
  13. ABILIFY [Concomitant]

REACTIONS (2)
  - DECREASED APPETITE [None]
  - WEIGHT DECREASED [None]
